FAERS Safety Report 6172889-X (Version None)
Quarter: 2009Q2

REPORT INFORMATION
  Report Type: 
  Country: None (occurrence: None)
  Receive Date: 20090430
  Receipt Date: 20090420
  Transmission Date: 20091009
  Serious: Yes (Hospitalization)
  Sender: FDA-Public Use
  Company Number: US-RB-014858-09

PATIENT
  Sex: Female

DRUGS (1)
  1. MUCINEX [Suspect]
     Route: 048

REACTIONS (1)
  - BLOOD PRESSURE INCREASED [None]
